FAERS Safety Report 10895475 (Version 3)
Quarter: 2015Q2

REPORT INFORMATION
  Report Type: Spontaneous
  Country: US (occurrence: US)
  Receive Date: 20150306
  Receipt Date: 20150420
  Transmission Date: 20150821
  Serious: Yes (Other)
  Sender: FDA-Public Use
  Company Number: US-ALLERGAN-1503542US

PATIENT
  Age: 61 Year
  Sex: Female
  Weight: 77.98 kg

DRUGS (6)
  1. SYSTANE (HYPROMELLOSE 2910 (4000 MPA.S)) [Concomitant]
     Active Substance: HYPROMELLOSE 2910 (4000 MPA.S)
     Dosage: UNKNOWN
     Dates: start: 201410
  2. CITRACAL [Concomitant]
     Active Substance: CALCIUM CITRATE
     Dosage: UNKNOWN
  3. FISH OIL [Concomitant]
     Active Substance: FISH OIL
     Dosage: UNKNOWN
  4. RESTASIS [Suspect]
     Active Substance: CYCLOSPORINE
     Indication: DRY EYE
     Dosage: 2 X DAY/ 1 DROP EACH EYE
     Route: 047
     Dates: start: 201410
  5. CALCIUM [Concomitant]
     Active Substance: CALCIUM
     Dosage: UNKNOWN
  6. MULTIVITAMIN [Concomitant]
     Active Substance: VITAMINS
     Dosage: UNKNOWN

REACTIONS (4)
  - Gallbladder operation [Unknown]
  - Dizziness [Unknown]
  - Nausea [Not Recovered/Not Resolved]
  - Abdominal pain upper [Not Recovered/Not Resolved]

NARRATIVE: CASE EVENT DATE: 201502
